FAERS Safety Report 5343619-6 (Version None)
Quarter: 2007Q2

REPORT INFORMATION
  Report Type: 
  Country: None (occurrence: None)
  Receive Date: 20070604
  Receipt Date: 20070523
  Transmission Date: 20071010
  Serious: Yes (Other)
  Sender: FDA-Public Use
  Company Number: JP-BAYER-200710366BYL

PATIENT
  Age: 72 Year
  Sex: Female

DRUGS (3)
  1. ASPIRIN [Suspect]
     Indication: PRINZMETAL ANGINA
     Dosage: TOTAL DAILY DOSE: 100 MG  UNIT DOSE: 100 MG
     Route: 048
     Dates: start: 20070424, end: 20070427
  2. CRESTOR [Concomitant]
     Dosage: UNIT DOSE: 2.5 MG
     Route: 048
  3. NITROPEN [Concomitant]
     Route: 048

REACTIONS (1)
  - CHEST PAIN [None]
